FAERS Safety Report 8096450-5 (Version None)
Quarter: 2012Q1

REPORT INFORMATION
  Report Type: 
  Country: None (occurrence: None)
  Receive Date: 20120129
  Receipt Date: 20111214
  Transmission Date: 20120608
  Serious: No
  Sender: FDA-Public Use
  Company Number: US-ABBOTT-11P-163-0883114-00

PATIENT
  Sex: Female
  Weight: 90.8 kg

DRUGS (3)
  1. HUMIRA [Suspect]
     Dates: start: 20111213
  2. HUMIRA [Suspect]
     Indication: PSORIASIS
     Dates: start: 20111206, end: 20111206
  3. XOPENEX [Concomitant]
     Indication: ASTHMA

REACTIONS (2)
  - DIZZINESS [None]
  - NAUSEA [None]
